FAERS Safety Report 7342213-5 (Version None)
Quarter: 2011Q1

REPORT INFORMATION
  Report Type: 
  Country: None (occurrence: None)
  Receive Date: 20110310
  Receipt Date: 20110304
  Transmission Date: 20110831
  Serious: Yes (Other)
  Sender: FDA-Public Use
  Company Number: US-ASTRAZENECA-2007UW12304

PATIENT
  Age: 16710 Day
  Sex: Female
  Weight: 142.9 kg

DRUGS (35)
  1. SEROQUEL [Suspect]
     Dosage: 100 MG  - 400 MG
     Route: 048
     Dates: start: 20020709
  2. CHLORPROMAZINE [Concomitant]
     Route: 065
  3. AZULFIDINE [Concomitant]
     Route: 065
  4. SEROQUEL [Suspect]
     Indication: BIPOLAR DISORDER
     Route: 048
     Dates: start: 20000101, end: 20070101
  5. SEROQUEL [Suspect]
     Dosage: 100 MG  - 400 MG
     Route: 048
     Dates: start: 20020709
  6. KLONOPIN [Concomitant]
     Dosage: 0.5 MG - 1 MG
     Route: 065
  7. CODEINE [Concomitant]
     Route: 065
  8. PEPCID [Concomitant]
     Route: 065
  9. PHENAZOPYRIDINE HCL TAB [Concomitant]
     Indication: URINARY TRACT INFECTION
  10. SEROQUEL [Suspect]
     Dosage: 100 MG  - 400 MG
     Route: 048
     Dates: start: 20020709
  11. VISTARIL [Concomitant]
     Dosage: 25 MG - 75 MG
     Route: 065
  12. WELLBUTRIN [Concomitant]
  13. CELEXA [Concomitant]
     Route: 065
  14. PROTONIX [Concomitant]
     Route: 065
  15. PHENOBARBITAL [Concomitant]
     Route: 065
  16. BENADRYL [Concomitant]
     Route: 065
  17. COLACE [Concomitant]
     Route: 065
  18. AMITRIPTYLINE [Concomitant]
     Route: 065
  19. EFFEXOR [Concomitant]
     Dosage: 37.5 MG - 150 MG
     Route: 065
  20. DESYREL [Concomitant]
     Route: 065
  21. DARVOCET-N 100 [Concomitant]
     Route: 065
  22. NUBAIN [Concomitant]
     Dosage: 10 MG/ ML
     Route: 065
  23. THIAMINE [Concomitant]
     Route: 065
  24. ABILIFY [Concomitant]
  25. CLOZARIL [Concomitant]
  26. GEODON [Concomitant]
  27. SEROQUEL [Suspect]
     Indication: SCHIZOPHRENIA
     Route: 048
     Dates: start: 20000101, end: 20070101
  28. REGLAN [Concomitant]
     Route: 065
  29. TENORMIN [Concomitant]
     Route: 065
  30. VALIUM [Concomitant]
  31. SEROQUEL [Suspect]
     Indication: DEPRESSION
     Route: 048
     Dates: start: 20000101, end: 20070101
  32. PHENERGAN [Concomitant]
     Dosage: 25 MG - 100 MG DAILY
     Route: 065
  33. BENTYL [Concomitant]
     Dosage: 40 MG - 80 MG DAILY
     Route: 065
  34. LASIX [Concomitant]
     Route: 065
  35. HALDOL [Concomitant]

REACTIONS (2)
  - DIABETIC NEUROPATHY [None]
  - TYPE 2 DIABETES MELLITUS [None]
